FAERS Safety Report 5461358-8 (Version None)
Quarter: 2007Q3

REPORT INFORMATION
  Report Type: 
  Country: None (occurrence: None)
  Receive Date: 20070920
  Receipt Date: 20070910
  Transmission Date: 20080115
  Serious: Yes (Death)
  Sender: FDA-Public Use
  Company Number: JP-JNJFOC-20070902103

PATIENT
  Sex: Male

DRUGS (9)
  1. RISPERDAL [Suspect]
     Indication: DRUG USE FOR UNKNOWN INDICATION
     Route: 048
  2. HALOPERIDOL [Concomitant]
     Route: 048
  3. ETIZOLAM [Concomitant]
     Route: 048
  4. BIPERIDEN HYDROCHLORIDE TAB [Concomitant]
     Route: 048
  5. VALPROATE SODIUM [Concomitant]
     Route: 048
  6. LEVOMEPROMAZINE MALEATE [Concomitant]
     Route: 048
  7. OLANZAPINE [Concomitant]
     Route: 048
  8. FLUNITRAZEPAM [Concomitant]
     Route: 048
  9. FLURAZEPAM [Concomitant]
     Route: 048

REACTIONS (2)
  - DEATH [None]
  - GRANULOCYTOPENIA [None]
